FAERS Safety Report 4331245-7 (Version None)
Quarter: 2004Q1

REPORT INFORMATION
  Report Type: 
  Country: None (occurrence: None)
  Receive Date: 20040331
  Receipt Date: 20040318
  Transmission Date: 20041129
  Serious: Yes (Hospitalization)
  Sender: FDA-Public Use
  Company Number: 2004018593

PATIENT
  Age: 47 Year
  Sex: Male

DRUGS (1)
  1. ZITHROMAX [Suspect]
     Indication: ACUTE SINUSITIS
     Dosage: (DAILY), ORAL
     Route: 048
     Dates: start: 20040104, end: 20040104

REACTIONS (1)
  - GRAND MAL CONVULSION [None]
